FAERS Safety Report 10446205 (Version 1)
Quarter: 2014Q3

REPORT INFORMATION
  Report Type: Spontaneous
  Country: BR (occurrence: BR)
  Receive Date: 20140911
  Receipt Date: 20140911
  Transmission Date: 20150326
  Serious: Yes (Other)
  Sender: FDA-Public Use
  Company Number: PHHY2014BR114835

PATIENT
  Age: 66 Year
  Sex: Female

DRUGS (7)
  1. OMEGA 3 [Concomitant]
     Active Substance: OMEGA-3 FATTY ACIDS
  2. HYDROCHLOROTHIAZIDE. [Concomitant]
     Active Substance: HYDROCHLOROTHIAZIDE
  3. SUNFLOWER OIL [Concomitant]
  4. SIMVASTATIN. [Suspect]
     Active Substance: SIMVASTATIN
     Dosage: 40 MG, QD (AT NIGHT)
     Route: 048
  5. NIMESULIDE [Concomitant]
     Active Substance: NIMESULIDE
  6. DORILEN [Concomitant]
  7. CILOSTAZOL. [Concomitant]
     Active Substance: CILOSTAZOL

REACTIONS (3)
  - Pain in extremity [Unknown]
  - Weight decreased [Unknown]
  - Thrombosis [Unknown]

NARRATIVE: CASE EVENT DATE: 20101010
